FAERS Safety Report 7400299-3 (Version None)
Quarter: 2011Q2

REPORT INFORMATION
  Report Type: 
  Country: None (occurrence: None)
  Receive Date: 20110407
  Receipt Date: 20110329
  Transmission Date: 20111010
  Serious: Yes (Hospitalization, Other)
  Sender: FDA-Public Use
  Company Number: DE-US-EMD SERONO, INC.-7032969

PATIENT
  Sex: Female

DRUGS (3)
  1. 2 MEDICAL PRODUCTS FOR BLOOD PRESSURE [Concomitant]
  2. REBIF [Suspect]
     Indication: MULTIPLE SCLEROSIS
     Route: 058
     Dates: start: 20050404
  3. 2 MEDICAL PRODUCTS FOR MUSCLE RELAXATION [Concomitant]

REACTIONS (7)
  - VARICOSE VEIN OPERATION [None]
  - MUSCLE SPASMS [None]
  - INGUINAL HERNIA REPAIR [None]
  - AUTOIMMUNE THYROIDITIS [None]
  - HYPERTENSION [None]
  - ONCOCYTOMA [None]
  - BRONCHIAL HYPERREACTIVITY [None]
